FAERS Safety Report 7030407 (Version 4)
Quarter: 2018Q3

REPORT INFORMATION
  Report Type: Spontaneous
  Country: US (occurrence: US)
  Receive Date: 20090623
  Receipt Date: 20180928
  Transmission Date: 20181010
  Serious: Yes (Hospitalization)
  Sender: FDA-Public Use
  Company Number: US-ASTRAZENECA-2008UW10242

PATIENT
  Age: 799 Month
  Sex: Female
  Weight: 49.9 kg

DRUGS (5)
  1. BEVESPI AEROSPHERE [Suspect]
     Active Substance: FORMOTEROL FUMARATE\GLYCOPYRROLATE
     Indication: CHRONIC OBSTRUCTIVE PULMONARY DISEASE
     Dosage: 9/4.8 MCG TWO INHALATIONS TWICE DAILY
     Route: 055
     Dates: start: 20171201
  2. SYMBICORT [Suspect]
     Active Substance: BUDESONIDE\FORMOTEROL FUMARATE DIHYDRATE
     Indication: CHRONIC OBSTRUCTIVE PULMONARY DISEASE
     Dosage: 160/4.5 MG 2 PUFFS TWICE PER DAY
     Route: 055
     Dates: start: 2015
  3. NIASPAN [Concomitant]
     Active Substance: NIACIN
  4. PULMICORT FLEXHALER [Suspect]
     Active Substance: BUDESONIDE
     Indication: CHRONIC OBSTRUCTIVE PULMONARY DISEASE
     Dosage: 180 MCG, 2 PUFFS, TWO TIMES A DAY
     Route: 055
     Dates: start: 200804, end: 200806
  5. SYMBICORT [Suspect]
     Active Substance: BUDESONIDE\FORMOTEROL FUMARATE DIHYDRATE
     Indication: DYSPNOEA
     Dosage: 160/4.5 MG 2 PUFFS TWICE PER DAY
     Route: 055
     Dates: start: 2015

REACTIONS (11)
  - Pneumonia [Unknown]
  - Dizziness [Unknown]
  - Throat irritation [Unknown]
  - Device defective [Unknown]
  - Arthralgia [Unknown]
  - Wrong technique in device usage process [Recovered/Resolved]
  - Drug dose omission [Unknown]
  - Lip swelling [Unknown]
  - Memory impairment [Unknown]
  - Lip discolouration [Unknown]
  - Back pain [Unknown]

NARRATIVE: CASE EVENT DATE: 200805
